FAERS Safety Report 20637061 (Version 4)
Quarter: 2022Q3

REPORT INFORMATION
  Report Type: Spontaneous
  Country: US (occurrence: US)
  Receive Date: 20220325
  Receipt Date: 20220909
  Transmission Date: 20221027
  Serious: Yes (Other)
  Sender: FDA-Public Use
  Company Number: US-PFIZER INC-202200434540

PATIENT
  Age: 60 Year
  Sex: Female

DRUGS (2)
  1. IBRANCE [Suspect]
     Active Substance: PALBOCICLIB
     Dosage: 125 MG
  2. IBRANCE [Suspect]
     Active Substance: PALBOCICLIB
     Dosage: 100 MG, CYCLIC (SOMETIMES TO TAKE MEDICATION 2 WEEKS ON AND 2 WEEKS OFF INSTEAD OF 3)

REACTIONS (10)
  - Neutropenia [Unknown]
  - Abdominal discomfort [Unknown]
  - Fatigue [Unknown]
  - Dizziness [Unknown]
  - Chills [Unknown]
  - Decreased appetite [Unknown]
  - Muscle spasms [Unknown]
  - Anaemia [Unknown]
  - Alopecia [Unknown]
  - Off label use [Unknown]
